FAERS Safety Report 9299005 (Version 1)
Quarter: 2013Q2

REPORT INFORMATION
  Report Type: Spontaneous
  Country: JP (occurrence: None)
  Receive Date: 20130515
  Receipt Date: 20130515
  Transmission Date: 20140414
  Serious: Yes (Hospitalization)
  Sender: FDA-Public Use
  Company Number: IMP_06691_2013

PATIENT
  Age: 70 Year
  Sex: Female

DRUGS (1)
  1. MINOCYCLINE (MINOCYCLINE) [Suspect]
     Indication: INFECTION
     Route: 048

REACTIONS (6)
  - Neuropathy peripheral [None]
  - Peroneal nerve palsy [None]
  - Arthralgia [None]
  - Vasculitis [None]
  - Melaena [None]
  - Weight decreased [None]
